FAERS Safety Report 8859064 (Version 1)
Quarter: 2012Q4

REPORT INFORMATION
  Report Type: Spontaneous
  Country: US (occurrence: None)
  Receive Date: 20121024
  Receipt Date: 20121024
  Transmission Date: 20130627
  Serious: Yes (Death)
  Sender: FDA-Public Use
  Company Number: None

PATIENT
  Age: 75 Year
  Sex: Male

DRUGS (1)
  1. AMITRIPTYLINE [Suspect]
     Dosage: 25 mg PO QHS
     Route: 048
     Dates: start: 20120605, end: 20120614

REACTIONS (2)
  - Cardiac arrest [None]
  - Torsade de pointes [None]
